FAERS Safety Report 17387157 (Version 2)
Quarter: 2020Q1

REPORT INFORMATION
  Report Type: Report from Study
  Country: US (occurrence: US)
  Receive Date: 20200206
  Receipt Date: 20200318
  Transmission Date: 20200409
  Serious: Yes (Hospitalization)
  Sender: FDA-Public Use
  Company Number: US-ADAMAS PHARMA, LLC-2020ADA00271

PATIENT
  Age: 75 Year
  Sex: Female
  Weight: 67.4 kg

DRUGS (18)
  1. GOCOVRI [Suspect]
     Active Substance: AMANTADINE
     Indication: DYSKINESIA
     Dosage: 137 MG, 1X/DAY, AT BEDTIME
     Route: 048
     Dates: start: 20191214, end: 20191220
  2. IMBRUVICA [Concomitant]
     Active Substance: IBRUTINIB
     Dosage: 280 MG, 1X/DAY
  3. VITAMIN D3 [Concomitant]
     Active Substance: CHOLECALCIFEROL
     Dosage: 1000 U, 1X/DAY
     Route: 048
  4. GOCOVRI [Suspect]
     Active Substance: AMANTADINE
     Dosage: 137 MG, 1X/DAY, AT BEDTIME
     Route: 048
     Dates: start: 202001, end: 202001
  5. OMEPRAZOLE. [Concomitant]
     Active Substance: OMEPRAZOLE
     Dosage: 20 MG, 1X/DAY
  6. MYRBETRIQ [Concomitant]
     Active Substance: MIRABEGRON
     Dosage: 25 MG, 1X/DAY
     Route: 048
  7. GOCOVRI [Suspect]
     Active Substance: AMANTADINE
     Dosage: 274 MG, 1X/DAY, AT BEDTIME
     Route: 048
     Dates: start: 20191221, end: 202001
  8. VITAMIN D [Concomitant]
     Active Substance: VITAMIN D NOS
  9. OSCAL [Concomitant]
     Active Substance: CALCIUM CARBONATE
     Dosage: 1 TABLETS, 1X/DAY
     Route: 048
  10. AZILECT [Concomitant]
     Active Substance: RASAGILINE MESYLATE
     Dosage: 1 MG, 1X/DAY
     Route: 048
  11. CALCIUM [Concomitant]
     Active Substance: CALCIUM
  12. VITAMIN B12 [Concomitant]
     Active Substance: CYANOCOBALAMIN
     Dosage: 1000 ?G, 1X/DAY
  13. COLACE [Concomitant]
     Active Substance: DOCUSATE SODIUM
     Dosage: 100 MG, EVERY OTHER DAY
     Route: 048
  14. IRON [Concomitant]
     Active Substance: IRON
  15. ESCITALOPRAM [Concomitant]
     Active Substance: ESCITALOPRAM OXALATE
     Dosage: 20 MG, 1X/DAY
  16. GOCOVRI [Suspect]
     Active Substance: AMANTADINE
     Dosage: EVERY OTHER DAY
     Route: 048
     Dates: start: 202001, end: 20200203
  17. RYTARY [Concomitant]
     Active Substance: CARBIDOPA\LEVODOPA
     Dosage: 4 CAPSULES, 3X/DAY
  18. ELIQUIS [Concomitant]
     Active Substance: APIXABAN
     Dosage: 2.5 MG, EVERY 12 HOURS
     Route: 048

REACTIONS (8)
  - Status epilepticus [Unknown]
  - Musculoskeletal stiffness [Unknown]
  - Fall [Unknown]
  - Systemic inflammatory response syndrome [Recovered/Resolved]
  - Blood pressure decreased [Unknown]
  - Asthenia [Not Recovered/Not Resolved]
  - Memory impairment [Not Recovered/Not Resolved]
  - Respiratory failure [Recovered/Resolved]

NARRATIVE: CASE EVENT DATE: 202001
